FAERS Safety Report 20674852 (Version 2)
Quarter: 2022Q2

REPORT INFORMATION
  Report Type: Spontaneous
  Country: CA (occurrence: CA)
  Receive Date: 20220405
  Receipt Date: 20220418
  Transmission Date: 20220720
  Serious: Yes (Hospitalization, Other)
  Sender: FDA-Public Use
  Company Number: CA-PFIZER INC-2020140863

PATIENT
  Age: 59 Year
  Sex: Male

DRUGS (3)
  1. LORBRENA [Suspect]
     Active Substance: LORLATINIB
     Indication: Lung neoplasm malignant
     Dosage: 100 MG (DIE)
     Dates: start: 20200429
  2. AVASTIN [Concomitant]
     Active Substance: BEVACIZUMAB
     Dosage: UNK
  3. MVASI [Concomitant]
     Active Substance: BEVACIZUMAB-AWWB
     Dosage: UNK

REACTIONS (7)
  - Seizure [Unknown]
  - Radiation necrosis [Unknown]
  - Hemiparesis [Unknown]
  - Adrenal insufficiency [Unknown]
  - Speech disorder [Unknown]
  - Oedema [Unknown]
  - Neoplasm progression [Unknown]
